FAERS Safety Report 8910761 (Version 1)
Quarter: 2012Q4

REPORT INFORMATION
  Report Type: 
  Country: JP (occurrence: JP)
  Receive Date: 20121116
  Receipt Date: 20121116
  Transmission Date: 20130627
  Serious: Yes (Other)
  Sender: FDA-Public Use
  Company Number: JP-PFIZER INC-2012270957

PATIENT
  Age: 80 Year
  Sex: Female

DRUGS (2)
  1. JZOLOFT [Suspect]
     Dosage: 25 mg/day
     Route: 048
  2. SULPIRIDE [Suspect]
     Dosage: UNK
     Route: 048

REACTIONS (1)
  - Parkinsonism [Recovered/Resolved]
